FAERS Safety Report 23921433 (Version 1)
Quarter: 2024Q2

REPORT INFORMATION
  Report Type: Spontaneous
  Country: VN (occurrence: None)
  Receive Date: 20240530
  Receipt Date: 20240530
  Transmission Date: 20240716
  Serious: Yes (Other)
  Sender: FDA-Public Use
  Company Number: 2024A121354

PATIENT
  Age: 66 Year
  Sex: Male

DRUGS (8)
  1. DURVALUMAB [Suspect]
     Active Substance: DURVALUMAB
     Indication: Lung adenocarcinoma
  2. OSIMERTINIB [Interacting]
     Active Substance: OSIMERTINIB
     Indication: Lung adenocarcinoma
     Route: 048
  3. OSIMERTINIB [Interacting]
     Active Substance: OSIMERTINIB
     Indication: Lung adenocarcinoma
     Dosage: DOSE INCREASED
     Route: 048
  4. OSIMERTINIB [Interacting]
     Active Substance: OSIMERTINIB
     Indication: Lung adenocarcinoma
     Route: 048
  5. RIFAMPIN [Interacting]
     Active Substance: RIFAMPIN
     Indication: Lung adenocarcinoma
  6. ISONIAZID [Concomitant]
     Active Substance: ISONIAZID
  7. PYRAZINAMIDE [Concomitant]
     Active Substance: PYRAZINAMIDE
  8. ETHAMBUTOL [Concomitant]
     Active Substance: ETHAMBUTOL HYDROCHLORIDE

REACTIONS (5)
  - Malignant neoplasm progression [Unknown]
  - Metastases to central nervous system [Unknown]
  - Metastases to bone [Unknown]
  - Metastases to adrenals [Unknown]
  - Drug interaction [Unknown]
